FAERS Safety Report 12669767 (Version 1)
Quarter: 2016Q3

REPORT INFORMATION
  Report Type: Spontaneous
  Country: US (occurrence: US)
  Receive Date: 20160819
  Receipt Date: 20160819
  Transmission Date: 20161109
  Serious: No
  Sender: FDA-Public Use
  Company Number: US-SHIRE-ALL1-2010-05386

PATIENT
  Age: 12 Year
  Sex: Male
  Weight: 77.55 kg

DRUGS (2)
  1. LAMICTAL [Concomitant]
     Active Substance: LAMOTRIGINE
     Indication: MOOD ALTERED
     Dosage: 2 MG, 1X/DAY:QD
     Route: 048
     Dates: start: 20101016
  2. VYVANSE [Suspect]
     Active Substance: LISDEXAMFETAMINE DIMESYLATE
     Dosage: UNK MG, 1X/DAY:QD (GAVE ONE OUNCE FROM THE FOUR OUNCES THAT HAD 70 MG CAPSULE DISSOLVED IN IT)
     Route: 048
     Dates: start: 20101016

REACTIONS (2)
  - Psychomotor hyperactivity [Not Recovered/Not Resolved]
  - Drug prescribing error [Not Recovered/Not Resolved]

NARRATIVE: CASE EVENT DATE: 20101016
